FAERS Safety Report 11457791 (Version 2)
Quarter: 2015Q3

REPORT INFORMATION
  Report Type: Report from Study
  Country: AR (occurrence: AR)
  Receive Date: 20150904
  Receipt Date: 20150917
  Transmission Date: 20151125
  Serious: Yes (Other)
  Sender: FDA-Public Use
  Company Number: PHHY2015AR105323

PATIENT
  Sex: Male

DRUGS (1)
  1. DIOVAN [Suspect]
     Active Substance: VALSARTAN
     Indication: HYPERTENSION
     Dosage: 160 MG, QD (STARTED FROM 3 AND HALF YEARS AGO)
     Route: 065

REACTIONS (12)
  - Drug ineffective [Unknown]
  - Blood pressure increased [Not Recovered/Not Resolved]
  - Blood pressure inadequately controlled [Not Recovered/Not Resolved]
  - Lung disorder [Unknown]
  - Parkinson^s disease [Unknown]
  - Amnesia [Not Recovered/Not Resolved]
  - Chills [Unknown]
  - Feeling cold [Recovered/Resolved]
  - Hyperhidrosis [Recovered/Resolved]
  - Pain [Recovered/Resolved]
  - Libido decreased [Recovered/Resolved]
  - Tremor [Not Recovered/Not Resolved]
